FAERS Safety Report 5738025-6 (Version None)
Quarter: 2008Q2

REPORT INFORMATION
  Report Type: 
  Country: None (occurrence: None)
  Receive Date: 20080508
  Receipt Date: 20080408
  Transmission Date: 20081010
  Serious: Yes (Other)
  Sender: FDA-Public Use
  Company Number: 47101

PATIENT
  Sex: Male

DRUGS (1)
  1. MITOMYCIN [Suspect]
     Indication: BLADDER CANCER
     Dosage: 40MG/40MLX1 DOSE HELD FOR 30
     Dates: start: 20080226

REACTIONS (2)
  - BURNING SENSATION [None]
  - CYSTITIS [None]
